FAERS Safety Report 6536709-3 (Version None)
Quarter: 2010Q1

REPORT INFORMATION
  Report Type: 
  Country: None (occurrence: None)
  Receive Date: 20100105
  Receipt Date: 20091221
  Transmission Date: 20100710
  Serious: Yes (Death, Hospitalization)
  Sender: FDA-Public Use
  Company Number: 2009223219

PATIENT
  Age: 68 Year
  Sex: Male

DRUGS (8)
  1. DALTEPARIN SODIUM [Suspect]
     Indication: LUNG NEOPLASM MALIGNANT
     Dosage: UNK
     Dates: start: 20090312
  2. SPIRONOLACTONE [Suspect]
     Dosage: 25 MG, UNK, ORAL
     Route: 048
     Dates: end: 20090602
  3. SALBUTAMOL (SALBUTAMOL) [Concomitant]
  4. METFORMIN HCL [Concomitant]
  5. DEXAMETHASONE TAB [Concomitant]
  6. DICLOFENAC SODIUM [Concomitant]
  7. MORPHINE SULFATE [Concomitant]
  8. ORAMORPH SR [Concomitant]

REACTIONS (3)
  - HYPERKALAEMIA [None]
  - LUNG NEOPLASM MALIGNANT [None]
  - MALIGNANT NEOPLASM PROGRESSION [None]
